FAERS Safety Report 17718363 (Version 1)
Quarter: 2020Q2

REPORT INFORMATION
  Report Type: Spontaneous
  Country: ES (occurrence: ES)
  Receive Date: 20200428
  Receipt Date: 20200428
  Transmission Date: 20200714
  Serious: Yes (Other)
  Sender: FDA-Public Use
  Company Number: NVSC2020ES113638

PATIENT
  Age: 41 Year
  Sex: Female

DRUGS (14)
  1. HERCEPTIN [Suspect]
     Active Substance: TRASTUZUMAB
     Indication: INVASIVE LOBULAR BREAST CARCINOMA
     Dosage: UNK
     Route: 065
     Dates: start: 201005
  2. VINORELBINE [Suspect]
     Active Substance: VINORELBINE TARTRATE
     Indication: INVASIVE LOBULAR BREAST CARCINOMA
     Route: 065
     Dates: start: 201205, end: 201209
  3. TRASTUZUMAB EMTANSINE [Suspect]
     Active Substance: ADO-TRASTUZUMAB EMTANSINE
     Indication: INVASIVE LOBULAR BREAST CARCINOMA
     Route: 065
     Dates: start: 20130123
  4. LETROZOL [Suspect]
     Active Substance: LETROZOLE
     Indication: INVASIVE LOBULAR BREAST CARCINOMA
     Route: 065
     Dates: start: 201005
  5. HERCEPTIN [Suspect]
     Active Substance: TRASTUZUMAB
     Dosage: UNK
     Route: 065
     Dates: start: 201201, end: 201204
  6. LAPATINIB [Concomitant]
     Active Substance: LAPATINIB
     Indication: PRODUCT USED FOR UNKNOWN INDICATION
     Route: 065
  7. TAXOL [Suspect]
     Active Substance: PACLITAXEL
     Indication: INVASIVE LOBULAR BREAST CARCINOMA
     Route: 065
     Dates: start: 201201, end: 201204
  8. DOCETAXEL. [Suspect]
     Active Substance: DOCETAXEL
     Indication: INVASIVE LOBULAR BREAST CARCINOMA
     Dosage: 100 MG/M2
     Route: 065
     Dates: start: 20080220, end: 20080604
  9. HERCEPTIN [Suspect]
     Active Substance: TRASTUZUMAB
     Dosage: UNK
     Route: 065
     Dates: start: 201205, end: 201209
  10. TAMOXIFENO [Suspect]
     Active Substance: TAMOXIFEN
     Indication: INVASIVE LOBULAR BREAST CARCINOMA
     Dosage: 20 MG, QD
     Route: 065
     Dates: end: 200902
  11. TRASTUZUMAB. [Suspect]
     Active Substance: TRASTUZUMAB
     Indication: PRODUCT USED FOR UNKNOWN INDICATION
     Route: 065
     Dates: start: 20080220, end: 20080604
  12. TRASTUZUMAB. [Suspect]
     Active Substance: TRASTUZUMAB
     Dosage: 6 MG/KG, TIW
     Route: 065
     Dates: end: 201902
  13. CAPECITABINE. [Suspect]
     Active Substance: CAPECITABINE
     Indication: INVASIVE LOBULAR BREAST CARCINOMA
     Route: 048
     Dates: start: 200912
  14. TRASTUZUMAB. [Suspect]
     Active Substance: TRASTUZUMAB
     Dosage: UNK
     Route: 065
     Dates: start: 200912

REACTIONS (8)
  - Haematotoxicity [Unknown]
  - Lymphangiosis carcinomatosa [Unknown]
  - Decreased appetite [Unknown]
  - Metastases to lymph nodes [Unknown]
  - Gastrointestinal toxicity [Unknown]
  - Metastases to liver [Unknown]
  - Pleural effusion [Unknown]
  - Asthenia [Unknown]

NARRATIVE: CASE EVENT DATE: 20080708
